FAERS Safety Report 18446104 (Version 1)
Quarter: 2020Q4

REPORT INFORMATION
  Report Type: Spontaneous
  Country: US (occurrence: US)
  Receive Date: 20201030
  Receipt Date: 20201030
  Transmission Date: 20210114
  Serious: Yes (Other)
  Sender: FDA-Public Use
  Company Number: US-PUMA BIOTECHNOLOGY, LTD.-2020US006393

PATIENT

DRUGS (3)
  1. FULVESTRANT. [Concomitant]
     Active Substance: FULVESTRANT
     Indication: HERG GENE MUTATION
     Dosage: UNK
  2. NERLYNX [Suspect]
     Active Substance: NERATINIB
     Indication: HERG GENE MUTATION
     Dosage: UNK
     Route: 065
     Dates: start: 2020
  3. TRASTUZUMAB. [Concomitant]
     Active Substance: TRASTUZUMAB
     Indication: HERG GENE MUTATION

REACTIONS (2)
  - Off label use [Unknown]
  - Haemoglobin decreased [Unknown]

NARRATIVE: CASE EVENT DATE: 20201022
